FAERS Safety Report 4891161-9 (Version None)
Quarter: 2006Q1

REPORT INFORMATION
  Report Type: 
  Country: None (occurrence: None)
  Receive Date: 20060123
  Receipt Date: 20060120
  Transmission Date: 20060701
  Serious: Yes (Hospitalization, Other)
  Sender: FDA-Public Use
  Company Number: HQWYE789101DEC05

PATIENT
  Age: 48 Year
  Sex: Male

DRUGS (7)
  1. RAPAMUNE [Suspect]
     Indication: PROPHYLAXIS AGAINST TRANSPLANT REJECTION
     Dosage: ORAL
     Route: 048
     Dates: start: 20051015, end: 20051015
  2. RAPAMUNE [Suspect]
     Dosage: 2 MG 1X PER 1 DAY; ORAL, 4 MG 1X PER 1 DAY; ORAL, 3 MG 1X PER 1 DAY; ORAL
     Route: 048
     Dates: start: 20051016, end: 20051026
  3. RAPAMUNE [Suspect]
     Dosage: 2 MG 1X PER 1 DAY; ORAL, 4 MG 1X PER 1 DAY; ORAL, 3 MG 1X PER 1 DAY; ORAL
     Route: 048
     Dates: start: 20051027
  4. RAPAMUNE [Suspect]
     Dosage: 2 MG 1X PER 1 DAY; ORAL, 4 MG 1X PER 1 DAY; ORAL, 3 MG 1X PER 1 DAY; ORAL
     Route: 048
     Dates: start: 20051205
  5. CYCLOSPORINE [Concomitant]
  6. PREDNISONE [Concomitant]
  7. BACTRIM [Concomitant]

REACTIONS (5)
  - BLOOD CREATINE INCREASED [None]
  - COMPLICATIONS OF TRANSPLANT SURGERY [None]
  - HAEMATOCRIT DECREASED [None]
  - HAEMOGLOBIN DECREASED [None]
  - LYMPHOCELE [None]
